FAERS Safety Report 4899556-4 (Version None)
Quarter: 2006Q1

REPORT INFORMATION
  Report Type: 
  Country: None (occurrence: None)
  Receive Date: 20060130
  Receipt Date: 20060117
  Transmission Date: 20060701
  Serious: Yes (Hospitalization, Other)
  Sender: FDA-Public Use
  Company Number: 2005145166

PATIENT
  Age: 73 Year
  Sex: Female
  Weight: 68 kg

DRUGS (3)
  1. AROMASIN [Suspect]
     Indication: BREAST CANCER
     Dosage: ONE TABLET (1 IN 1 D), ORAL
     Route: 048
     Dates: start: 20030804
  2. LEVOTHYROXINE SODIUM [Concomitant]
  3. HYDROCHLOROTHIAZIDE [Concomitant]

REACTIONS (8)
  - AMNESIA [None]
  - ARTHROPATHY [None]
  - DIPLEGIA [None]
  - ELECTROENCEPHALOGRAM ABNORMAL [None]
  - HEADACHE [None]
  - HYPERHIDROSIS [None]
  - INCOHERENT [None]
  - TRANSIENT ISCHAEMIC ATTACK [None]
